FAERS Safety Report 16040985 (Version 1)
Quarter: 2019Q1

REPORT INFORMATION
  Report Type: Spontaneous
  Country: US (occurrence: US)
  Receive Date: 20190207
  Receipt Date: 20190207
  Transmission Date: 20190418
  Serious: Yes (Death)
  Sender: FDA-Public Use
  Company Number: None

PATIENT
  Age: 73 Year
  Sex: Male

DRUGS (16)
  1. IMATINIB MES 400 MG [Suspect]
     Active Substance: IMATINIB MESYLATE
     Indication: CHRONIC MYELOID LEUKAEMIA
     Route: 048
     Dates: start: 20180118, end: 20190207
  2. POTASSIUM [Concomitant]
     Active Substance: POTASSIUM
  3. FISH OIL [Concomitant]
     Active Substance: FISH OIL
  4. CITALOPRAM [Concomitant]
     Active Substance: CITALOPRAM HYDROBROMIDE
  5. TORSEMIDE. [Concomitant]
     Active Substance: TORSEMIDE
  6. ERQOCALSIFEROL [Concomitant]
  7. ASPIRIN. [Concomitant]
     Active Substance: ASPIRIN
  8. CALCIUM [Concomitant]
     Active Substance: CALCIUM
  9. LOVOLIN [Concomitant]
  10. ATORVASTATIN [Suspect]
     Active Substance: ATORVASTATIN
  11. CARVEDILOL. [Concomitant]
     Active Substance: CARVEDILOL
  12. MAGNESIUM [Concomitant]
     Active Substance: MAGNESIUM
  13. GLEEVEC [Concomitant]
     Active Substance: IMATINIB MESYLATE
  14. GABAPINTIN [Concomitant]
  15. NOVOLOG [Concomitant]
     Active Substance: INSULIN ASPART
  16. LONSARTAN [Concomitant]

REACTIONS (1)
  - Death [None]

NARRATIVE: CASE EVENT DATE: 20190207
